FAERS Safety Report 4460220-7 (Version None)
Quarter: 2004Q3

REPORT INFORMATION
  Report Type: 
  Country: None (occurrence: None)
  Receive Date: 20040928
  Receipt Date: 20040204
  Transmission Date: 20050211
  Serious: No
  Sender: FDA-Public Use
  Company Number: US-GLAXOSMITHKLINE-A0496669A

PATIENT
  Age: 73 Year
  Sex: Female

DRUGS (2)
  1. SEREVENT [Suspect]
     Indication: ASTHMA
     Dosage: 1PUFF TWO TIMES PER WEEK
     Route: 055
     Dates: start: 20030725
  2. ALBUTEROL [Concomitant]

REACTIONS (2)
  - DRUG INEFFECTIVE [None]
  - PHARMACEUTICAL PRODUCT COMPLAINT [None]
